FAERS Safety Report 7537885-6 (Version None)
Quarter: 2011Q2

REPORT INFORMATION
  Report Type: 
  Country: None (occurrence: None)
  Receive Date: 20110609
  Receipt Date: 20110606
  Transmission Date: 20111010
  Serious: Yes (Other)
  Sender: FDA-Public Use
  Company Number: PHHY2011GB49002

PATIENT
  Age: 30 Year
  Sex: Female
  Weight: 138 kg

DRUGS (3)
  1. FUROSEMIDE [Concomitant]
     Dosage: 80 MG, QD
     Route: 048
  2. DOXAZOSIN MESYLATE [Suspect]
     Indication: HYPERTENSION
     Dosage: 4 MG, UNK
     Route: 048
     Dates: start: 20110420
  3. IRBESARTAN [Concomitant]
     Dosage: 300 MG, QD
     Route: 048

REACTIONS (2)
  - BLISTER [None]
  - DERMATITIS BULLOUS [None]
